FAERS Safety Report 11422730 (Version 1)
Quarter: 2015Q3

REPORT INFORMATION
  Report Type: Report from Study
  Country: AU (occurrence: AU)
  Receive Date: 20150827
  Receipt Date: 20150827
  Transmission Date: 20151125
  Serious: Yes (Life-Threatening, Hospitalization)
  Sender: FDA-Public Use
  Company Number: AU-UNITED THERAPEUTICS LTD.-UTC-002380

PATIENT
  Age: 73 Year
  Sex: Female
  Weight: 74.9 kg

DRUGS (8)
  1. UT-15C SR [Suspect]
     Active Substance: TREPROSTINIL DIOLAMINE
     Indication: PULMONARY ARTERIAL HYPERTENSION
     Route: 048
     Dates: start: 20100615
  2. SILDENAFIL. [Concomitant]
     Active Substance: SILDENAFIL
     Indication: PULMONARY ARTERIAL HYPERTENSION
  3. NEXIUM [Concomitant]
     Active Substance: ESOMEPRAZOLE MAGNESIUM
     Route: 048
  4. SPAN K [Concomitant]
  5. ILOPROST [Concomitant]
     Active Substance: ILOPROST
  6. BOSENTAN [Concomitant]
     Active Substance: BOSENTAN
     Indication: PULMONARY ARTERIAL HYPERTENSION
  7. LASIX [Concomitant]
     Active Substance: FUROSEMIDE
     Route: 048
  8. LIPITOR [Concomitant]
     Active Substance: ATORVASTATIN CALCIUM
     Route: 048

REACTIONS (3)
  - Acute pulmonary oedema [Recovered/Resolved with Sequelae]
  - Rebound effect [Recovered/Resolved with Sequelae]
  - Pulmonary arterial hypertension [Recovered/Resolved with Sequelae]

NARRATIVE: CASE EVENT DATE: 20101101
